FAERS Safety Report 8118689-2 (Version None)
Quarter: 2012Q1

REPORT INFORMATION
  Report Type: 
  Country: None (occurrence: None)
  Receive Date: 20120202
  Receipt Date: 20120124
  Transmission Date: 20120608
  Serious: Yes (Other)
  Sender: FDA-Public Use
  Company Number: 2012SP004724

PATIENT
  Sex: Male

DRUGS (3)
  1. PEG-INTRON [Suspect]
     Indication: HEPATITIS C
     Dosage: 150 MCG
     Dates: start: 20111129
  2. VICTRELIS [Suspect]
     Indication: HEPATITIS C
     Dates: start: 20111229
  3. RIBAVIRIN [Suspect]
     Indication: HEPATITIS C
     Dates: start: 20111129

REACTIONS (6)
  - MEMORY IMPAIRMENT [None]
  - PHARYNGITIS [None]
  - HEARING IMPAIRED [None]
  - HEADACHE [None]
  - PHARYNGEAL OEDEMA [None]
  - WHITE BLOOD CELL COUNT INCREASED [None]
